FAERS Safety Report 17600211 (Version 1)
Quarter: 2020Q1

REPORT INFORMATION
  Report Type: Report from Study
  Country: US (occurrence: US)
  Receive Date: 20200330
  Receipt Date: 20200330
  Transmission Date: 20200409
  Serious: Yes (Death)
  Sender: FDA-Public Use
  Company Number: NVSC2020US087843

PATIENT
  Age: 54 Year
  Sex: Male

DRUGS (1)
  1. COSENTYX [Suspect]
     Active Substance: SECUKINUMAB
     Indication: PSORIASIS
     Dosage: 300 MG, QW (INJECT 300 MG SQ AT WEEK 0, 1, 2, 3, AND 4 THEN INJECT 300 MG ONCE EVERY 4 WEEKS THEREAF
     Route: 058

REACTIONS (1)
  - Death [Fatal]
